FAERS Safety Report 14252883 (Version 3)
Quarter: 2018Q4

REPORT INFORMATION
  Report Type: Spontaneous
  Country: US (occurrence: US)
  Receive Date: 20171205
  Receipt Date: 20181126
  Transmission Date: 20190204
  Serious: No
  Sender: FDA-Public Use
  Company Number: US-PFIZER INC-2017516056

PATIENT
  Age: 54 Year
  Sex: Female

DRUGS (7)
  1. DOXIL [PEGYLATED LIPOSOMAL DOXORUBICIN HYDROCHLORIDE] [Concomitant]
     Indication: CHEMOTHERAPY
     Dosage: UNK
  2. VITAMIN C [Concomitant]
     Active Substance: ASCORBIC ACID
     Dosage: UNK
     Dates: start: 2014
  3. TAXOTERE [Suspect]
     Active Substance: DOCETAXEL
     Indication: BREAST CANCER
     Dosage: 148 MG, CYCLIC (EVERY 2 WEEKS FOR 6 CYCLES)
     Dates: start: 20141211, end: 20150305
  4. ADRIAMYCIN [Concomitant]
     Active Substance: DOXORUBICIN HYDROCHLORIDE
     Indication: CHEMOTHERAPY
     Dosage: UNK
  5. NEOSAR [Concomitant]
     Active Substance: CYCLOPHOSPHAMIDE
     Indication: CHEMOTHERAPY
     Dosage: UNK
  6. DOCETAXEL. [Suspect]
     Active Substance: DOCETAXEL
     Indication: BREAST CANCER
     Dosage: 148 MG, CYCLIC (EVERY 2 WEEKS FOR 6 CYCLES)
     Dates: start: 20141211, end: 20150305
  7. IBUPROFEN. [Concomitant]
     Active Substance: IBUPROFEN
     Dosage: UNK
     Dates: start: 2014, end: 2016

REACTIONS (5)
  - Hair disorder [Recovered/Resolved]
  - Madarosis [Recovered/Resolved]
  - Hair colour changes [Recovered/Resolved]
  - Alopecia [Recovered/Resolved]
  - Hair texture abnormal [Recovered/Resolved]

NARRATIVE: CASE EVENT DATE: 201509
